FAERS Safety Report 11704202 (Version 1)
Quarter: 2015Q4

REPORT INFORMATION
  Report Type: Report from Study
  Country: FI (occurrence: FI)
  Receive Date: 20151106
  Receipt Date: 20151106
  Transmission Date: 20160304
  Serious: Yes (Other)
  Sender: FDA-Public Use
  Company Number: FI-LEO PHARMA-238052

PATIENT
  Age: 76 Year
  Sex: Female

DRUGS (1)
  1. PICATO [Suspect]
     Active Substance: INGENOL MEBUTATE
     Indication: PRODUCT USED FOR UNKNOWN INDICATION
     Dates: start: 20151031, end: 20151101

REACTIONS (7)
  - Cardiac disorder [Unknown]
  - Eye swelling [Unknown]
  - Incorrect drug administration duration [Unknown]
  - Application site vesicles [Unknown]
  - Atrial fibrillation [Unknown]
  - Eye irritation [Unknown]
  - Drug administered at inappropriate site [Unknown]

NARRATIVE: CASE EVENT DATE: 201511
